FAERS Safety Report 23523614 (Version 1)
Quarter: 2024Q1

REPORT INFORMATION
  Report Type: Spontaneous
  Country: IT (occurrence: IT)
  Receive Date: 20240214
  Receipt Date: 20240214
  Transmission Date: 20240410
  Serious: Yes (Hospitalization)
  Sender: FDA-Public Use
  Company Number: None

PATIENT
  Age: 81 Year
  Sex: Female

DRUGS (2)
  1. PREDNISONE [Suspect]
     Active Substance: PREDNISONE
     Indication: Product used for unknown indication
     Dosage: 50 MILLIGRAM (INTAKE BEFORE CEMIPLIMAB THERAPY: 50 MG THE DAY BEFORE AND 50 MG THE SAME DAY)
     Route: 048
     Dates: start: 20240116, end: 20240117
  2. LIBTAYO [Suspect]
     Active Substance: CEMIPLIMAB-RWLC
     Indication: Squamous cell carcinoma of skin
     Dosage: 350 MG EVERY 3 WEEKS (17 CYCLES)
     Route: 042
     Dates: start: 20230131, end: 20240117

REACTIONS (3)
  - Hyperglycaemia [Recovering/Resolving]
  - Polydipsia [Recovering/Resolving]
  - Polyuria [Recovering/Resolving]

NARRATIVE: CASE EVENT DATE: 20240130
